FAERS Safety Report 4865351-5 (Version None)
Quarter: 2005Q4

REPORT INFORMATION
  Report Type: 
  Country: None (occurrence: None)
  Receive Date: 20051220
  Receipt Date: 20051220
  Transmission Date: 20060501
  Serious: Yes (Death, Life-Threatening, Hospitalization)
  Sender: FDA-Public Use
  Company Number: None

PATIENT
  Age: 46 Year
  Sex: Male

DRUGS (2)
  1. CAPTOPRIL [Suspect]
     Indication: RENAL FAILURE CHRONIC
     Dosage: 25 MG TID
  2. ENALAPRIL [Suspect]
     Indication: RENAL FAILURE ACUTE
     Dosage: 2.5 MG TID

REACTIONS (6)
  - CARDIAC FAILURE CONGESTIVE [None]
  - DISEASE RECURRENCE [None]
  - HAEMODIALYSIS [None]
  - HYPOTENSION [None]
  - PNEUMONIA KLEBSIELLA [None]
  - RENAL FAILURE CHRONIC [None]
